FAERS Safety Report 9467661 (Version 1)
Quarter: 2013Q3

REPORT INFORMATION
  Report Type: Spontaneous
  Country: US (occurrence: US)
  Receive Date: 20130821
  Receipt Date: 20130821
  Transmission Date: 20140515
  Serious: No
  Sender: FDA-Public Use
  Company Number: US-JNJFOC-20130801697

PATIENT
  Age: 42 Year
  Sex: Female
  Weight: 72.58 kg

DRUGS (4)
  1. INVEGA SUSTENNA [Suspect]
     Indication: SCHIZOPHRENIA
     Route: 030
     Dates: start: 201002
  2. INVEGA SUSTENNA [Suspect]
     Indication: SCHIZOPHRENIA
     Route: 030
     Dates: start: 2009, end: 201001
  3. INVEGA [Concomitant]
     Indication: SCHIZOPHRENIA
     Route: 048
  4. ATIVAN [Concomitant]
     Route: 048

REACTIONS (3)
  - Therapeutic response decreased [Unknown]
  - Scar [Not Recovered/Not Resolved]
  - Inappropriate schedule of drug administration [Unknown]
